FAERS Safety Report 6432042-9 (Version None)
Quarter: 2009Q4

REPORT INFORMATION
  Report Type: 
  Country: None (occurrence: None)
  Receive Date: 20091109
  Receipt Date: 20091030
  Transmission Date: 20100525
  Serious: Yes (Hospitalization)
  Sender: FDA-Public Use
  Company Number: RO-ROCHE-630625

PATIENT
  Sex: Male

DRUGS (6)
  1. PEG-INTERFERON ALFA 2A (RO 25-8310) [Suspect]
     Route: 058
     Dates: start: 20090211
  2. PEG-INTERFERON ALFA 2A (RO 25-8310) [Suspect]
     Dosage: DOSAGE REDUCED.
     Route: 058
     Dates: start: 20090423
  3. PEG-INTERFERON ALFA 2A (RO 25-8310) [Suspect]
     Route: 058
     Dates: start: 20090520
  4. RIBAVIRIN [Suspect]
     Route: 048
     Dates: start: 20090211
  5. BLINDED DEBIO-025 (UNIL-025) [Suspect]
     Route: 048
     Dates: start: 20090211, end: 20090217
  6. BLINDED DEBIO-025 (UNIL-025) [Suspect]
     Route: 048
     Dates: start: 20090218

REACTIONS (2)
  - DEPRESSION [None]
  - PERSONALITY DISORDER [None]
